FAERS Safety Report 25550217 (Version 1)
Quarter: 2025Q3

REPORT INFORMATION
  Report Type: Spontaneous
  Country: US (occurrence: None)
  Receive Date: 20250711
  Receipt Date: 20250711
  Transmission Date: 20251021
  Serious: Yes (Life-Threatening, Hospitalization)
  Sender: FDA-CTU
  Company Number: None

PATIENT
  Age: 80 Year
  Sex: Female

DRUGS (1)
  1. DIETARY SUPPLEMENT [Suspect]
     Active Substance: DIETARY SUPPLEMENT
     Dates: start: 20250709, end: 20250709

REACTIONS (4)
  - Pyrexia [None]
  - Chills [None]
  - Syncope [None]
  - Hypotension [None]

NARRATIVE: CASE EVENT DATE: 20250709
